FAERS Safety Report 5055955-1 (Version None)
Quarter: 2006Q3

REPORT INFORMATION
  Report Type: 
  Country: None (occurrence: None)
  Receive Date: 20060720
  Receipt Date: 20060707
  Transmission Date: 20061208
  Serious: Yes (Hospitalization)
  Sender: FDA-Public Use
  Company Number: FR-BRISTOL-MYERS SQUIBB COMPANY-13444138

PATIENT
  Age: 75 Year
  Sex: Male

DRUGS (4)
  1. ERBITUX [Suspect]
     Indication: COLORECTAL CANCER
     Route: 042
     Dates: start: 20060606, end: 20060706
  2. CAMPTOSAR [Suspect]
     Route: 042
     Dates: start: 20060606, end: 20060706
  3. POLARAMINE [Concomitant]
     Indication: PREMEDICATION
  4. METHYLPREDNISOLONE [Concomitant]
     Indication: PREMEDICATION

REACTIONS (2)
  - CARDIAC ENZYMES INCREASED [None]
  - MYOCARDIAL INFARCTION [None]
